FAERS Safety Report 17864511 (Version 2)
Quarter: 2020Q4

REPORT INFORMATION
  Report Type: Spontaneous
  Country: US (occurrence: US)
  Receive Date: 20200605
  Receipt Date: 20201020
  Transmission Date: 20210113
  Serious: No
  Sender: FDA-Public Use
  Company Number: US-TEVA-2020-US-1238664

PATIENT
  Sex: Female

DRUGS (2)
  1. AJOVY [Suspect]
     Active Substance: FREMANEZUMAB-VFRM
     Indication: HEADACHE
  2. AJOVY [Suspect]
     Active Substance: FREMANEZUMAB-VFRM
     Indication: PAIN
     Dosage: 225MG/1.5
     Route: 065
     Dates: start: 20200428

REACTIONS (6)
  - Nausea [Unknown]
  - Visual impairment [Unknown]
  - Injection site bruising [Unknown]
  - Pain [Unknown]
  - Adverse drug reaction [Unknown]
  - Vision blurred [Unknown]
